FAERS Safety Report 8229589-1 (Version None)
Quarter: 2012Q1

REPORT INFORMATION
  Report Type: 
  Country: None (occurrence: None)
  Receive Date: 20120322
  Receipt Date: 20120315
  Transmission Date: 20120608
  Serious: Yes (Hospitalization)
  Sender: FDA-Public Use
  Company Number: PHHO2012NL004308

PATIENT
  Sex: Female

DRUGS (2)
  1. LETROZOLE [Suspect]
     Indication: BREAST CANCER
     Dosage: UNK
     Route: 048
     Dates: start: 20100630
  2. ALVESCO [Concomitant]
     Indication: HYPERSENSITIVITY
     Dosage: 2X160

REACTIONS (1)
  - EPIGLOTTITIS [None]
